FAERS Safety Report 6051886-9 (Version None)
Quarter: 2009Q1

REPORT INFORMATION
  Report Type: 
  Country: None (occurrence: None)
  Receive Date: 20090126
  Receipt Date: 20051222
  Transmission Date: 20090719
  Serious: Yes (Other)
  Sender: FDA-Public Use
  Company Number: PL-PFIZER INC-2008160503

PATIENT

DRUGS (5)
  1. CELECOXIB [Suspect]
     Indication: NEOPLASM PROPHYLAXIS
     Dosage: UNK
     Route: 048
     Dates: start: 20020304
  2. OMEPRAZOLE [Concomitant]
     Dosage: UNK
     Dates: start: 20021220
  3. PANTOPRAZOLE [Concomitant]
     Dosage: UNK
     Dates: start: 20011001
  4. MACROGOL [Concomitant]
     Dosage: UNK
     Dates: start: 20020115
  5. COMBIPATCH [Concomitant]
     Dosage: 150/140
     Dates: start: 20020601

REACTIONS (1)
  - BREAST CANCER [None]
